FAERS Safety Report 5198992-9 (Version None)
Quarter: 2007Q1

REPORT INFORMATION
  Report Type: 
  Country: None (occurrence: None)
  Receive Date: 20070104
  Receipt Date: 20061221
  Transmission Date: 20070707
  Serious: Yes (Hospitalization, Other)
  Sender: FDA-Public Use
  Company Number: US-AMGEN-KDL186971

PATIENT
  Sex: Female

DRUGS (7)
  1. ENBREL [Suspect]
     Indication: PSORIASIS
     Route: 058
     Dates: start: 20030717, end: 20060518
  2. HYDROCODONE BITARTRATE [Concomitant]
  3. FLURAZEPAM HCL [Concomitant]
  4. TRAMADOL HCL [Concomitant]
  5. TIZANIDINE HCL [Concomitant]
  6. POTASSIUM CHLORIDE [Concomitant]
  7. FUROSEMIDE [Concomitant]

REACTIONS (5)
  - ARACHNOIDITIS [None]
  - MULTIPLE SCLEROSIS [None]
  - NERVE COMPRESSION [None]
  - POST PROCEDURAL COMPLICATION [None]
  - PSORIASIS [None]
